FAERS Safety Report 5288421-9 (Version None)
Quarter: 2007Q2

REPORT INFORMATION
  Report Type: 
  Country: None (occurrence: None)
  Receive Date: 20070405
  Receipt Date: 20070327
  Transmission Date: 20071010
  Serious: Yes (Hospitalization)
  Sender: FDA-Public Use
  Company Number: SE-MERCK-0703SWE00069

PATIENT
  Age: 80 Year
  Sex: Female

DRUGS (7)
  1. ZOCOR [Suspect]
     Route: 048
  2. METFORMIN HYDROCHLORIDE [Suspect]
     Route: 065
  3. GLYBURIDE [Concomitant]
     Route: 065
  4. DIGOXIN [Concomitant]
     Route: 065
  5. ALLOPURINOL [Concomitant]
     Route: 065
  6. VASOTEC [Suspect]
     Route: 048
  7. ISOSORBIDE MONONITRATE [Concomitant]
     Route: 065

REACTIONS (11)
  - BLOOD CREATININE INCREASED [None]
  - BLOOD POTASSIUM INCREASED [None]
  - CHEST PAIN [None]
  - DEPRESSED LEVEL OF CONSCIOUSNESS [None]
  - DIALYSIS [None]
  - HYPOGLYCAEMIA [None]
  - LACTIC ACIDOSIS [None]
  - NAUSEA [None]
  - PYREXIA [None]
  - URINE OUTPUT DECREASED [None]
  - VOMITING [None]
